FAERS Safety Report 12326902 (Version 2)
Quarter: 2016Q2

REPORT INFORMATION
  Report Type: Spontaneous
  Country: US (occurrence: US)
  Receive Date: 20160503
  Receipt Date: 20160627
  Transmission Date: 20160815
  Serious: No
  Sender: FDA-Public Use
  Company Number: US-PFIZER INC-2016211013

PATIENT
  Age: 54 Year
  Sex: Female
  Weight: 58.6 kg

DRUGS (4)
  1. LYRICA [Suspect]
     Active Substance: PREGABALIN
     Indication: FIBROMYALGIA
     Dosage: 100 MG, 3X/DAY
     Route: 048
  2. SERTRALINE [Concomitant]
     Active Substance: SERTRALINE HYDROCHLORIDE
     Indication: BIPOLAR DISORDER
     Dosage: 100 MG, 2X/DAY
  3. NORCO [Concomitant]
     Active Substance: ACETAMINOPHEN\HYDROCODONE BITARTRATE
     Indication: FRACTURED COCCYX
     Dosage: 20 MG, DAILY,10 MG 2 TABLETS
  4. CLONAZEPAM. [Concomitant]
     Active Substance: CLONAZEPAM
     Indication: NEURALGIA
     Dosage: 1 MG, 2X/DAY

REACTIONS (8)
  - Formication [Unknown]
  - Alopecia [Unknown]
  - Burning sensation [Unknown]
  - Memory impairment [Unknown]
  - Pruritus [Unknown]
  - Back pain [Unknown]
  - Intentional product misuse [Unknown]
  - Aphasia [Unknown]
